FAERS Safety Report 10433661 (Version 2)
Quarter: 2014Q4

REPORT INFORMATION
  Report Type: Spontaneous
  Country: JP (occurrence: JP)
  Receive Date: 20140905
  Receipt Date: 20141009
  Transmission Date: 20150528
  Serious: Yes (Death, Hospitalization, Other)
  Sender: FDA-Public Use
  Company Number: PHHY2014JP112239

PATIENT
  Age: 69 Year
  Sex: Female
  Weight: 62 kg

DRUGS (7)
  1. LYRICA [Concomitant]
     Active Substance: PREGABALIN
     Indication: SPINAL COLUMN STENOSIS
     Dosage: 300 MG
     Route: 048
     Dates: start: 201111
  2. TASIGNA [Suspect]
     Active Substance: NILOTINIB
     Indication: CHRONIC MYELOID LEUKAEMIA
     Dosage: 600 MG, DAILY
     Route: 048
     Dates: start: 20091019
  3. OPALMON [Concomitant]
     Active Substance: LIMAPROST
     Indication: SPINAL COLUMN STENOSIS
     Dosage: 30 UG
     Route: 048
  4. METHYCOBAL [Concomitant]
     Active Substance: METHYLCOBALAMIN
     Indication: SPINAL COLUMN STENOSIS
     Dosage: 1500 UG
     Route: 048
  5. TASIGNA [Suspect]
     Active Substance: NILOTINIB
     Dosage: 600 MG, DAILY
     Route: 048
     Dates: start: 20110523
  6. NEUROTROPIN [Concomitant]
     Active Substance: NEUROTROPIN
     Indication: SPINAL COLUMN STENOSIS
     Dosage: 16 DF
     Route: 048
     Dates: start: 201401
  7. TRAMCET [Concomitant]
     Active Substance: ACETAMINOPHEN\TRAMADOL
     Indication: SPINAL COLUMN STENOSIS
     Dosage: 3 DF
     Route: 048
     Dates: start: 201311

REACTIONS (6)
  - Hyperbilirubinaemia [Not Recovered/Not Resolved]
  - Gait disturbance [Fatal]
  - Fall [Fatal]
  - Cerebral infarction [Fatal]
  - Vomiting [Fatal]
  - Dizziness [Fatal]

NARRATIVE: CASE EVENT DATE: 20091130
